FAERS Safety Report 13196108 (Version 5)
Quarter: 2018Q4

REPORT INFORMATION
  Report Type: Spontaneous
  Country: DE (occurrence: DE)
  Receive Date: 20170208
  Receipt Date: 20181227
  Transmission Date: 20190204
  Serious: Yes (Hospitalization, Other)
  Sender: FDA-Public Use
  Company Number: DE-AUROBINDO-AUR-APL-2017-29282

PATIENT
  Age: 81 Year
  Sex: Female

DRUGS (11)
  1. RISPERIDONE 4MG [Suspect]
     Active Substance: RISPERIDONE
     Indication: MAJOR DEPRESSION
     Dosage: 4 MILLIGRAM, ONCE A DAY
     Route: 065
  2. VENLAFAXINE [Interacting]
     Active Substance: VENLAFAXINE HYDROCHLORIDE
     Indication: MAJOR DEPRESSION
     Dosage: 187.5 MILLIGRAM, ONCE A DAY
     Route: 065
  3. VENLAFAXINE [Interacting]
     Active Substance: VENLAFAXINE HYDROCHLORIDE
     Indication: MAJOR DEPRESSION
  4. CEFUROXIME. [Concomitant]
     Active Substance: CEFUROXIME
     Indication: NOSOCOMIAL INFECTION
  5. VANCOMYCIN                         /00314402/ [Concomitant]
     Active Substance: VANCOMYCIN
     Indication: PRODUCT USED FOR UNKNOWN INDICATION
     Dosage: 750 MG, UNK
     Route: 065
  6. CIPROFLOXACIN                      /00697202/ [Concomitant]
     Active Substance: CIPROFLOXACIN HYDROCHLORIDE
     Indication: PRODUCT USED FOR UNKNOWN INDICATION
     Dosage: 1500 MG, UNK
     Route: 065
  7. METRONIDAZOLE. [Interacting]
     Active Substance: METRONIDAZOLE
     Indication: CLOSTRIDIUM DIFFICILE COLITIS
     Dosage: 1200 MG, QD
     Route: 065
  8. NORTRIPTYLINE [Concomitant]
     Active Substance: NORTRIPTYLINE
     Indication: MAJOR DEPRESSION
     Dosage: 75 MG,UNK
     Route: 065
  9. VENLAFAXINE [Interacting]
     Active Substance: VENLAFAXINE HYDROCHLORIDE
     Indication: PSYCHOTIC DISORDER
     Dosage: 75 MG, UNK
     Route: 065
  10. METRONIDAZOLE. [Interacting]
     Active Substance: METRONIDAZOLE
     Indication: GASTROENTERITIS CLOSTRIDIAL
     Dosage: 400 MG, 3 TIMES A DAY (DAILY DOSAGE OF 1,200 MG (IN 400 MG TABLETS))
     Route: 065
  11. CEFUROXIME. [Concomitant]
     Active Substance: CEFUROXIME
     Indication: URINARY TRACT INFECTION
     Dosage: UNK
     Route: 065

REACTIONS (13)
  - Hyponatraemia [Recovering/Resolving]
  - Orthostatic hypotension [Recovering/Resolving]
  - Headache [Recovering/Resolving]
  - Nosocomial infection [Unknown]
  - Drug level increased [Recovering/Resolving]
  - Hypotension [Unknown]
  - Urinary tract infection pseudomonal [Unknown]
  - Clostridium colitis [Unknown]
  - Dizziness [Recovering/Resolving]
  - Dehydration [Unknown]
  - Antipsychotic drug level increased [Unknown]
  - Drug interaction [Recovering/Resolving]
  - Fatigue [Unknown]
